FAERS Safety Report 12517597 (Version 35)
Quarter: 2019Q4

REPORT INFORMATION
  Report Type: Report from Study
  Country: CA (occurrence: CA)
  Receive Date: 20160630
  Receipt Date: 20191024
  Transmission Date: 20200122
  Serious: Yes (Hospitalization, Other)
  Sender: FDA-Public Use
  Company Number: PHHY2016CA016468

PATIENT
  Age: 52 Year
  Sex: Female

DRUGS (10)
  1. SULFATRIM [Concomitant]
     Active Substance: SULFAMETHOXAZOLE\TRIMETHOPRIM
     Indication: PRODUCT USED FOR UNKNOWN INDICATION
     Dosage: 1 DF, TIW
     Route: 065
     Dates: end: 2016
  2. TEMODAL [Suspect]
     Active Substance: TEMOZOLOMIDE
     Indication: PRODUCT USED FOR UNKNOWN INDICATION
     Dosage: 335 MG, QD (PER 5 DAYS PER MONTH)
     Route: 065
     Dates: start: 201606
  3. SANDOSTATIN LAR DEPOT [Suspect]
     Active Substance: OCTREOTIDE ACETATE
     Indication: CARCINOID TUMOUR
     Dosage: 30 MG, QMO (EVERY 4 WEEKS)
     Route: 030
     Dates: start: 20151209
  4. SANDOSTATIN LAR DEPOT [Suspect]
     Active Substance: OCTREOTIDE ACETATE
     Dosage: UNK
     Route: 030
     Dates: start: 20181010
  5. MAGNESIUM [Concomitant]
     Active Substance: MAGNESIUM
     Indication: PRODUCT USED FOR UNKNOWN INDICATION
     Dosage: 835 MG (200 ML), BID
     Route: 042
     Dates: start: 201902
  6. MORPHINE [Suspect]
     Active Substance: MORPHINE
     Indication: PRODUCT USED FOR UNKNOWN INDICATION
     Dosage: UNK
     Route: 065
  7. DEXILANT [Concomitant]
     Active Substance: DEXLANSOPRAZOLE
     Indication: PRODUCT USED FOR UNKNOWN INDICATION
     Route: 065
  8. PANTOPRAZOLE [Suspect]
     Active Substance: PANTOPRAZOLE
     Indication: PRODUCT USED FOR UNKNOWN INDICATION
     Dosage: 40 MG, BID (BEFORE BREAKFAST )
     Route: 065
     Dates: start: 201706
  9. CODEINE PHOSPHATE [Suspect]
     Active Substance: CODEINE PHOSPHATE
     Indication: PRODUCT USED FOR UNKNOWN INDICATION
     Dosage: UNK
     Route: 065
  10. DOMPERIDONE [Concomitant]
     Active Substance: DOMPERIDONE
     Indication: PRODUCT USED FOR UNKNOWN INDICATION
     Dosage: 10 MG, TID (BEFORE MEALS)
     Route: 048
     Dates: start: 201707

REACTIONS (39)
  - Myocardial infarction [Unknown]
  - Influenza [Unknown]
  - Nausea [Unknown]
  - Carcinoid tumour [Not Recovered/Not Resolved]
  - Hypotension [Unknown]
  - Erythema nodosum [Unknown]
  - Ecchymosis [Unknown]
  - Oropharyngeal pain [Unknown]
  - Nasopharyngitis [Unknown]
  - Psychiatric symptom [Unknown]
  - Contusion [Recovered/Resolved]
  - Dehydration [Unknown]
  - Musculoskeletal pain [Recovered/Resolved]
  - Pain [Unknown]
  - Mood altered [Unknown]
  - Blood pressure systolic decreased [Unknown]
  - Neoplasm progression [Unknown]
  - Injection site pain [Unknown]
  - Needle issue [Unknown]
  - Stress [Unknown]
  - Headache [Unknown]
  - Gastritis fungal [Unknown]
  - Malignant neoplasm progression [Unknown]
  - Rhinorrhoea [Unknown]
  - Vomiting [Recovered/Resolved]
  - Metastases to liver [Recovering/Resolving]
  - Feeling hot [Unknown]
  - Back pain [Recovering/Resolving]
  - Alopecia [Unknown]
  - Nausea [Recovered/Resolved]
  - Decreased immune responsiveness [Unknown]
  - Diarrhoea [Unknown]
  - Gait disturbance [Unknown]
  - Discomfort [Unknown]
  - Body temperature decreased [Unknown]
  - Cough [Unknown]
  - Bronchial disorder [Unknown]
  - Fatigue [Unknown]
  - Heart rate decreased [Unknown]

NARRATIVE: CASE EVENT DATE: 2016
